FAERS Safety Report 12866680 (Version 1)
Quarter: 2016Q4

REPORT INFORMATION
  Report Type: Spontaneous
  Country: US (occurrence: US)
  Receive Date: 20161020
  Receipt Date: 20161020
  Transmission Date: 20170207
  Serious: No
  Sender: FDA-Public Use
  Company Number: US-BAUSCH-BL-2016-014859

PATIENT
  Age: 21 Year
  Sex: Male
  Weight: 72.64 kg

DRUGS (2)
  1. BUPROPION  XL [Suspect]
     Active Substance: BUPROPION
     Indication: DEPRESSION
     Route: 048
     Dates: start: 20160610, end: 20160617
  2. BUPROPION  XL [Suspect]
     Active Substance: BUPROPION
     Indication: ANXIETY

REACTIONS (3)
  - Thirst [Recovering/Resolving]
  - Pollakiuria [Recovering/Resolving]
  - Dry mouth [Recovering/Resolving]

NARRATIVE: CASE EVENT DATE: 201606
